FAERS Safety Report 4897589-5 (Version None)
Quarter: 2006Q1

REPORT INFORMATION
  Report Type: 
  Country: None (occurrence: None)
  Receive Date: 20060130
  Receipt Date: 20060130
  Transmission Date: 20060701
  Serious: Yes (Other)
  Sender: FDA-Public Use
  Company Number: None

PATIENT
  Age: 83 Year
  Sex: Female

DRUGS (1)
  1. MIACALCIN [Suspect]
     Indication: OSTEOPOROSIS
     Dosage: ONE SPRAY DAILY NASAL
     Route: 045
     Dates: start: 20021001, end: 20021108

REACTIONS (3)
  - ADVERSE DRUG REACTION [None]
  - BLISTER [None]
  - DERMATITIS BULLOUS [None]
